FAERS Safety Report 15018345 (Version 2)
Quarter: 2019Q4

REPORT INFORMATION
  Report Type: Report from Study
  Country: UY (occurrence: UY)
  Receive Date: 20180615
  Receipt Date: 20191110
  Transmission Date: 20200122
  Serious: Yes (Death)
  Sender: FDA-Public Use
  Company Number: PHHY2018UY023000

PATIENT

DRUGS (1)
  1. TRAMETINIB [Suspect]
     Active Substance: TRAMETINIB
     Indication: METASTATIC MALIGNANT MELANOMA
     Route: 048

REACTIONS (2)
  - Malignant neoplasm progression [Fatal]
  - Metastatic malignant melanoma [Fatal]
